FAERS Safety Report 8835990 (Version 3)
Quarter: 2013Q1

REPORT INFORMATION
  Report Type: Spontaneous
  Country: US (occurrence: US)
  Receive Date: 20121011
  Receipt Date: 20130123
  Transmission Date: 20140127
  Serious: No
  Sender: FDA-Public Use
  Company Number: US-PFIZER INC-2012250165

PATIENT
  Age: 60 Year
  Sex: Male
  Weight: 70.3 kg

DRUGS (4)
  1. CHANTIX [Suspect]
     Indication: SMOKING CESSATION THERAPY
     Dosage: 0.5 MG, DAILY
     Dates: start: 20120910, end: 201209
  2. CHANTIX [Suspect]
     Dosage: 0.5 MG, 2X/DAY
     Dates: start: 201209, end: 201209
  3. CHANTIX [Suspect]
     Dosage: 1 MG, 2X/DAY
     Dates: start: 201209, end: 201209
  4. COMBIVENT [Concomitant]
     Indication: ASTHMA
     Dosage: ONE PUFF, DAILY

REACTIONS (3)
  - Impatience [Recovering/Resolving]
  - Agitation [Recovering/Resolving]
  - Irritability [Recovered/Resolved]
